FAERS Safety Report 6109571-0 (Version None)
Quarter: 2009Q1

REPORT INFORMATION
  Report Type: 
  Country: None (occurrence: None)
  Receive Date: 20090310
  Receipt Date: 20090227
  Transmission Date: 20090719
  Serious: Yes (Hospitalization)
  Sender: FDA-Public Use
  Company Number: JP-JNJFOC-20090300070

PATIENT
  Sex: Female

DRUGS (8)
  1. MICONAZOLE GEL [Suspect]
     Route: 048
  2. MICONAZOLE GEL [Suspect]
     Indication: ORAL CANDIDIASIS
     Route: 048
  3. WARFARIN SODIUM [Interacting]
     Indication: CEREBRAL INFARCTION
     Route: 048
  4. AMLODIPINE BESYLATE [Concomitant]
     Indication: HYPERTENSION
     Route: 048
  5. CANDESARTAN CILEXETIL [Concomitant]
     Indication: HYPERTENSION
     Route: 048
  6. ALENDRONATE SODIUM [Concomitant]
     Indication: OSTEOPOROSIS
     Route: 048
  7. BROTIZOLAM [Concomitant]
     Indication: INSOMNIA
     Route: 048
  8. PREDNISOLONE [Concomitant]
     Indication: MICROSCOPIC POLYANGIITIS
     Route: 048

REACTIONS (3)
  - DRUG INTERACTION [None]
  - INTERNATIONAL NORMALISED RATIO INCREASED [None]
  - MOUTH HAEMORRHAGE [None]
